FAERS Safety Report 9579295 (Version 1)
Quarter: 2013Q4

REPORT INFORMATION
  Report Type: Spontaneous
  Country: US (occurrence: US)
  Receive Date: 20131001
  Receipt Date: 20131001
  Transmission Date: 20140711
  Serious: No
  Sender: FDA-Public Use
  Company Number: US-AMGEN-USASP2013017094

PATIENT
  Age: 57 Year
  Sex: Female
  Weight: 58.05 kg

DRUGS (11)
  1. ENBREL [Suspect]
     Indication: RHEUMATOID ARTHRITIS
     Dosage: 50 MG, QWK
     Route: 058
  2. FLEXERIL                           /00428402/ [Concomitant]
     Dosage: 10 MG, UNK
  3. PHENERGAN                          /00033001/ [Concomitant]
     Dosage: 25 MG, UNK
  4. RELAFEN [Concomitant]
     Dosage: 750 MG, UNK
  5. TOPAMAX [Concomitant]
     Dosage: 100 MG, UNK
  6. VALTREX [Concomitant]
     Dosage: 500 MG, UNK
  7. ASA [Concomitant]
     Dosage: 81 MG, UNK
  8. OPANA [Concomitant]
     Dosage: 20 MG, UNK
  9. OPANA [Concomitant]
     Dosage: 5 MG, UNK
  10. DEXILANT [Concomitant]
     Dosage: 60 MG, UNK
  11. AMILORIDE [Concomitant]
     Dosage: 5 MG, UNK

REACTIONS (7)
  - Injection site reaction [Unknown]
  - Injection site mass [Unknown]
  - Injection site bruising [Unknown]
  - Injection site erythema [Unknown]
  - Injection site pruritus [Unknown]
  - Injection site warmth [Unknown]
  - Headache [Unknown]
